FAERS Safety Report 12654835 (Version 1)
Quarter: 2016Q3

REPORT INFORMATION
  Report Type: Spontaneous
  Country: US (occurrence: None)
  Receive Date: 20160815
  Receipt Date: 20160815
  Transmission Date: 20161109
  Serious: Yes (Hospitalization)
  Sender: FDA-Public Use
  Company Number: None

PATIENT
  Age: 1 Year
  Sex: Male

DRUGS (1)
  1. POLYVITAMIN WITH IRON [Suspect]
     Active Substance: IRON\VITAMINS
     Indication: VITAMIN SUPPLEMENTATION
     Route: 048
     Dates: start: 20160628, end: 20160813

REACTIONS (5)
  - Dyspnoea [None]
  - Product quality issue [None]
  - Chills [None]
  - Vomiting [None]
  - Pyrexia [None]

NARRATIVE: CASE EVENT DATE: 201607
